FAERS Safety Report 5932404-X (Version None)
Quarter: 2008Q4

REPORT INFORMATION
  Report Type: 
  Country: None (occurrence: None)
  Receive Date: 20081027
  Receipt Date: 20081027
  Transmission Date: 20090506
  Serious: Yes (Other)
  Sender: FDA-Public Use
  Company Number: None

PATIENT
  Age: 54 Year
  Sex: Female
  Weight: 142.8831 kg

DRUGS (5)
  1. LEVAQUIN [Suspect]
     Indication: SINUSITIS
     Dosage: 1 TABLET 1/DAY PO
     Route: 048
     Dates: start: 20080916, end: 20080930
  2. METFORMIN HCL [Concomitant]
  3. BYETTA [Concomitant]
  4. PRAVASTATIN [Concomitant]
  5. SERTRALINE [Concomitant]

REACTIONS (14)
  - ARTHRALGIA [None]
  - ASTHENIA [None]
  - BACK DISORDER [None]
  - CONTUSION [None]
  - DYSSTASIA [None]
  - FLUID RETENTION [None]
  - GAIT DISTURBANCE [None]
  - JOINT SWELLING [None]
  - MOVEMENT DISORDER [None]
  - MUSCLE SPASMS [None]
  - MUSCULOSKELETAL STIFFNESS [None]
  - OEDEMA PERIPHERAL [None]
  - PAIN IN EXTREMITY [None]
  - TREMOR [None]
